FAERS Safety Report 4364478-4 (Version None)
Quarter: 2004Q2

REPORT INFORMATION
  Report Type: 
  Country: None (occurrence: None)
  Receive Date: 20040525
  Receipt Date: 20040519
  Transmission Date: 20050107
  Serious: Yes (Hospitalization)
  Sender: FDA-Public Use
  Company Number: CLAV2004-0002

PATIENT
  Age: 41 Year
  Sex: Male

DRUGS (1)
  1. CLAVURION [Suspect]
     Indication: SINUSITIS
     Dosage: 1750MG PER DAY
     Route: 048
     Dates: start: 20040422, end: 20040425

REACTIONS (3)
  - ABDOMINAL PAIN UPPER [None]
  - COLITIS [None]
  - DIARRHOEA HAEMORRHAGIC [None]
